FAERS Safety Report 9543298 (Version 3)
Quarter: 2014Q3

REPORT INFORMATION
  Report Type: Spontaneous
  Country: IT (occurrence: IT)
  Receive Date: 20130923
  Receipt Date: 20140827
  Transmission Date: 20150326
  Serious: Yes (Hospitalization)
  Sender: FDA-Public Use
  Company Number: PHHY2013IT104525

PATIENT
  Age: 69 Year
  Sex: Male

DRUGS (16)
  1. ALLOPURINOL TEVA [Concomitant]
     Active Substance: ALLOPURINOL
     Dosage: 150 MG, UNK
     Route: 048
  2. CARDICOR [Concomitant]
     Active Substance: BISOPROLOL
     Dosage: 1.25 MG, UNK
     Route: 048
  3. MYFORTIC [Suspect]
     Active Substance: MYCOPHENOLATE SODIUM
     Indication: RENAL TRANSPLANT
     Dosage: 720 MG, QD
     Route: 048
     Dates: start: 20130529, end: 20130601
  4. MYFORTIC [Suspect]
     Active Substance: MYCOPHENOLATE SODIUM
     Dosage: 180 MG, BID
     Dates: start: 20130627, end: 20130715
  5. MYFORTIC [Suspect]
     Active Substance: MYCOPHENOLATE SODIUM
     Dosage: UNK UKN, UNK
     Dates: end: 20130809
  6. LASILIX [Concomitant]
     Active Substance: FUROSEMIDE
     Dosage: 50 MG, UNK
     Route: 048
  7. MYFORTIC [Suspect]
     Active Substance: MYCOPHENOLATE SODIUM
     Dosage: UNK UKN, UNK
     Dates: end: 20130624
  8. DELTACORTENE [Suspect]
     Active Substance: PREDNISONE
     Dosage: UNK UKN, UNK
  9. SANDIMMUN NEORAL [Concomitant]
     Active Substance: CYCLOSPORINE
     Dosage: 100 MG, UNK
     Route: 048
  10. LANSOPRAZOLO DOC [Concomitant]
     Dosage: UNK
     Route: 048
  11. DELTACORTENE [Suspect]
     Active Substance: PREDNISONE
     Indication: PROPHYLAXIS AGAINST TRANSPLANT REJECTION
     Dosage: 12.5 MG, QD
     Route: 048
     Dates: start: 20130501, end: 20130601
  12. AVODART [Concomitant]
     Active Substance: DUTASTERIDE
     Indication: BENIGN PROSTATIC HYPERPLASIA
     Dosage: 0.5 MG, UNK
     Route: 048
  13. DIDROGYL [Concomitant]
     Dosage: 15 DF, UNK
     Route: 048
  14. TRIATEC [Concomitant]
     Active Substance: RAMIPRIL
     Dosage: 5 MG, UNK
     Route: 048
  15. PRADIF [Concomitant]
     Dosage: 0.4 MG, UNK
  16. SODIUM BICARBONATE. [Concomitant]
     Active Substance: SODIUM BICARBONATE
     Dosage: UNK

REACTIONS (5)
  - Hypotension [Unknown]
  - Asthenia [Unknown]
  - Melaena [Unknown]
  - Anaemia [Unknown]
  - Presyncope [Unknown]

NARRATIVE: CASE EVENT DATE: 20130530
